FAERS Safety Report 9263495 (Version 1)
Quarter: 2013Q2

REPORT INFORMATION
  Report Type: Spontaneous
  Country: US (occurrence: US)
  Receive Date: 20130430
  Receipt Date: 20130430
  Transmission Date: 20140414
  Serious: No
  Sender: FDA-Public Use
  Company Number: US-ABBOTT-13P-163-1070681-00

PATIENT
  Age: 49 Year
  Sex: Female
  Weight: 40.41 kg

DRUGS (2)
  1. CREON [Suspect]
     Indication: PANCREATIC INSUFFICIENCY
     Dosage: 3 PER MEAL
     Dates: start: 2005
  2. XOPENEX [Concomitant]
     Indication: INHALATION THERAPY

REACTIONS (3)
  - Weight decreased [Not Recovered/Not Resolved]
  - Asthenia [Not Recovered/Not Resolved]
  - Malaise [Not Recovered/Not Resolved]
